FAERS Safety Report 6588570-9 (Version None)
Quarter: 2010Q1

REPORT INFORMATION
  Report Type: 
  Country: None (occurrence: None)
  Receive Date: 20100218
  Receipt Date: 20091117
  Transmission Date: 20100710
  Serious: No
  Sender: FDA-Public Use
  Company Number: US-ALLERGAN-0915983US

PATIENT
  Age: 38 Year
  Sex: Female

DRUGS (1)
  1. BOTOX COSMETIC [Suspect]
     Indication: HYPERHIDROSIS
     Dosage: 40 UNITS, SINGLE
     Dates: start: 20091110, end: 20091110

REACTIONS (2)
  - PERIORBITAL OEDEMA [None]
  - WRONG TECHNIQUE IN DRUG USAGE PROCESS [None]
